FAERS Safety Report 16396932 (Version 1)
Quarter: 2019Q2

REPORT INFORMATION
  Report Type: Report from Study
  Country: None (occurrence: GB)
  Receive Date: 20190606
  Receipt Date: 20190606
  Transmission Date: 20190711
  Serious: Yes (Other)
  Sender: FDA-Public Use
  Company Number: GB-ABBVIE-19K-167-2794817-00

PATIENT
  Age: 48 Year
  Sex: Female

DRUGS (2)
  1. HUMIRA [Suspect]
     Active Substance: ADALIMUMAB
     Indication: COLITIS ULCERATIVE
     Route: 058
     Dates: start: 20161221, end: 20190423
  2. HUMIRA [Suspect]
     Active Substance: ADALIMUMAB
     Route: 058
     Dates: start: 20190517

REACTIONS (1)
  - Foreign body in eye [Recovered/Resolved]

NARRATIVE: CASE EVENT DATE: 20190421
